FAERS Safety Report 6524106-6 (Version None)
Quarter: 2009Q4

REPORT INFORMATION
  Report Type: 
  Country: None (occurrence: None)
  Receive Date: 20091231
  Receipt Date: 20091223
  Transmission Date: 20100525
  Serious: Yes (Hospitalization)
  Sender: FDA-Public Use
  Company Number: GB-GENENTECH-295534

PATIENT
  Sex: Male
  Weight: 62 kg

DRUGS (3)
  1. MABTHERA [Suspect]
     Indication: B-CELL LYMPHOMA
     Dosage: 50 MG, UNK
     Route: 042
     Dates: start: 20091030, end: 20091106
  2. ANTIHISTAMINE [Concomitant]
     Indication: DRUG USE FOR UNKNOWN INDICATION
     Dosage: UNK
  3. PARACETAMOL [Concomitant]
     Indication: DRUG USE FOR UNKNOWN INDICATION
     Dosage: UNK

REACTIONS (2)
  - BODY TEMPERATURE INCREASED [None]
  - JAUNDICE [None]
